FAERS Safety Report 18899079 (Version 2)
Quarter: 2021Q1

REPORT INFORMATION
  Report Type: Spontaneous
  Country: GB (occurrence: GB)
  Receive Date: 20210216
  Receipt Date: 20210304
  Transmission Date: 20210420
  Serious: Yes (Death, Other)
  Sender: FDA-Public Use
  Company Number: GB-BAYER-2021-058650

PATIENT
  Age: 54 Year
  Sex: Female

DRUGS (2)
  1. SORAFENIB (RAF KINASE INHIBITOR) [Suspect]
     Active Substance: SORAFENIB
     Indication: ACUTE MYELOID LEUKAEMIA
     Dosage: 400 MG, BID
     Dates: start: 20201010, end: 20201024
  2. AZACITIDINE. [Concomitant]
     Active Substance: AZACITIDINE
     Dosage: UNK
     Dates: start: 20201002, end: 20201009

REACTIONS (7)
  - Infection [None]
  - Product use in unapproved indication [None]
  - Acute myeloid leukaemia [Fatal]
  - Drug ineffective [None]
  - Off label use [None]
  - Bone marrow transplant [None]
  - Cytopenia [None]
